FAERS Safety Report 5465220-6 (Version None)
Quarter: 2007Q3

REPORT INFORMATION
  Report Type: 
  Country: None (occurrence: None)
  Receive Date: 20070924
  Receipt Date: 20070913
  Transmission Date: 20080115
  Serious: Yes (Other)
  Sender: FDA-Public Use
  Company Number: PHHO2007FR11967

PATIENT
  Sex: Female
  Weight: 71 kg

DRUGS (1)
  1. IMATINIB MESYLATE [Suspect]
     Indication: GASTROINTESTINAL STROMAL TUMOUR
     Dosage: 400 MG, UNK
     Route: 048
     Dates: start: 20060925, end: 20070709

REACTIONS (5)
  - EYELID PTOSIS [None]
  - FACIAL PALSY [None]
  - MIGRAINE WITH AURA [None]
  - PARAESTHESIA [None]
  - TOOTH DISORDER [None]
